FAERS Safety Report 18100039 (Version 1)
Quarter: 2020Q3

REPORT INFORMATION
  Report Type: Report from Study
  Country: US (occurrence: US)
  Receive Date: 20200731
  Receipt Date: 20200731
  Transmission Date: 20201103
  Serious: Yes (Other)
  Sender: FDA-Public Use
  Company Number: US-ASTRAZENECA-2020SE93233

PATIENT
  Age: 61 Year

DRUGS (3)
  1. CARBOPLATIN/PACLITAXEL [Interacting]
     Active Substance: CARBOPLATIN\PACLITAXEL
     Indication: NON-SMALL CELL LUNG CANCER STAGE IIIB
     Route: 065
  2. RADIOTHERAPY [Interacting]
     Active Substance: RADIATION THERAPY
     Indication: NON-SMALL CELL LUNG CANCER STAGE IIIB
     Dosage: 60GY RT, MEAN LUNG DOSE: 10.2 GY
     Route: 065
  3. DURVALUMAB. [Suspect]
     Active Substance: DURVALUMAB
     Indication: NON-SMALL CELL LUNG CANCER STAGE IIIB
     Route: 042

REACTIONS (2)
  - Radiation pneumonitis [Recovered/Resolved]
  - Radiation interaction [Recovered/Resolved]
